FAERS Safety Report 8325174-1 (Version None)
Quarter: 2012Q2

REPORT INFORMATION
  Report Type: 
  Country: None (occurrence: None)
  Receive Date: 20120427
  Receipt Date: 20120416
  Transmission Date: 20120825
  Serious: Yes (Other)
  Sender: FDA-Public Use
  Company Number: 2012P1014966

PATIENT
  Age: 32 Year
  Sex: Male

DRUGS (6)
  1. COUMADIN [Concomitant]
  2. DIGOXIN [Concomitant]
  3. LISINOPRIL [Concomitant]
  4. FUROSEMIDE [Concomitant]
  5. SOTALOL HCL [Concomitant]
  6. AMIODARONE HCL [Suspect]
     Indication: ATRIAL TACHYCARDIA
     Dosage: 250 MG;X2;IV, 900 MG;OVER 24 HOURS;IV,  400 MG;TID;PO 200 MG;QD;PO
     Route: 048

REACTIONS (2)
  - MUSCLE SPASMS [None]
  - BLOOD CREATINE PHOSPHOKINASE INCREASED [None]
